FAERS Safety Report 5113185-9 (Version None)
Quarter: 2006Q3

REPORT INFORMATION
  Report Type: 
  Country: None (occurrence: None)
  Receive Date: 20060731
  Receipt Date: 20060609
  Transmission Date: 20061208
  Serious: No
  Sender: FDA-Public Use
  Company Number: 2006PV015347

PATIENT
  Age: 58 Year
  Sex: Female

DRUGS (7)
  1. BYETTA [Suspect]
     Indication: DIABETES MELLITUS NON-INSULIN-DEPENDENT
     Dosage: 5 MCG; BID; SC
     Route: 058
     Dates: start: 20060531
  2. AUGMENTIN XR [Suspect]
     Indication: BRONCHITIS
     Dosage: 875 MG;BID; PO
     Route: 048
     Dates: start: 20060530, end: 20060607
  3. ROCEPHIN [Suspect]
     Indication: BRONCHITIS
     Dosage: 1 GM; IM
     Route: 030
     Dates: start: 20060530
  4. ZELNORM [Concomitant]
  5. VICODIN [Concomitant]
  6. PROMETHAZINE W/ CODEINE [Concomitant]
  7. PHENERGAN [Concomitant]

REACTIONS (5)
  - DIZZINESS [None]
  - ERUCTATION [None]
  - FREQUENT BOWEL MOVEMENTS [None]
  - HEADACHE [None]
  - NAUSEA [None]
